FAERS Safety Report 22275093 (Version 2)
Quarter: 2023Q2

REPORT INFORMATION
  Report Type: Report from Study
  Country: BR (occurrence: BR)
  Receive Date: 20230502
  Receipt Date: 20230525
  Transmission Date: 20230721
  Serious: Yes (Other)
  Sender: FDA-Public Use
  Company Number: BR-BoehringerIngelheim-2023-BI-228456

PATIENT
  Age: 35 Year
  Sex: Male
  Weight: 70 kg

DRUGS (2)
  1. SPESOLIMAB [Suspect]
     Active Substance: SPESOLIMAB
     Indication: Pustular psoriasis
     Dosage: SOLUTION FOR INFUSION
     Route: 042
     Dates: start: 20230104
  2. SPESOLIMAB [Suspect]
     Active Substance: SPESOLIMAB
     Dosage: SOLUTION FOR INFUSION
     Route: 042
     Dates: start: 20230113

REACTIONS (2)
  - Skin lesion [Recovered/Resolved]
  - Pustular psoriasis [Recovered/Resolved]

NARRATIVE: CASE EVENT DATE: 20230107
